FAERS Safety Report 7821250-8 (Version None)
Quarter: 2011Q4

REPORT INFORMATION
  Report Type: 
  Country: None (occurrence: None)
  Receive Date: 20111018
  Receipt Date: 20111012
  Transmission Date: 20120403
  Serious: Yes (Other)
  Sender: FDA-Public Use
  Company Number: US-PFIZER INC-2011091788

PATIENT
  Sex: Female

DRUGS (3)
  1. GEODON [Suspect]
     Dosage: 600 MG, 2X/DAY
  2. CYMBALTA [Concomitant]
  3. LAMICTAL [Concomitant]

REACTIONS (1)
  - SUICIDE ATTEMPT [None]
